FAERS Safety Report 9553321 (Version 4)
Quarter: 2014Q1

REPORT INFORMATION
  Report Type: Spontaneous
  Country: US (occurrence: None)
  Receive Date: 20130805
  Receipt Date: 20140122
  Transmission Date: 20141002
  Serious: Yes (Other)
  Sender: FDA-Public Use
  Company Number: AEGR000065

PATIENT
  Age: 67 Year
  Sex: Male
  Weight: 90.2 kg

DRUGS (13)
  1. JUXTAPID [Suspect]
     Indication: TYPE IIA HYPERLIPIDAEMIA
     Dosage: 5 MG, QD, ORAL
     Route: 048
     Dates: start: 20130327, end: 20130421
  2. FLUOXETINE HYDROCHLORIDE (FLUOXETINE HYDROCHLORIDE) [Suspect]
     Indication: PRODUCT USED FOR UNKNOWN INDICATION
     Dosage: 30 MG, QD
     Dates: end: 20130724
  3. ASA (ACETYLSALICYLIC ACID) [Concomitant]
  4. ALLOPURINOL (ALLOPURINOL) [Concomitant]
  5. COREG CR (CARVEDILOL) [Concomitant]
  6. EFFIENT [Suspect]
     Indication: PRODUCT USED FOR UNKNOWN INDICATION
     Dosage: 30 MG, QD
     Dates: end: 20130724
  7. HYDROCHLOROTHIAZIDE [Concomitant]
  8. IRON [Concomitant]
  9. PRILOSEC [Concomitant]
  10. VITAMIN D [Concomitant]
  11. FOLTX [Concomitant]
  12. MAXIVISION EYE FORMULA [Concomitant]
  13. LOVAZA (MEGA-3-ACID ETHYL ESTER) [Concomitant]

REACTIONS (6)
  - Transaminases increased [None]
  - Aspartate aminotransferase increased [None]
  - Alanine aminotransferase increased [None]
  - Flatulence [None]
  - Abdominal discomfort [None]
  - Liver function test abnormal [None]
